FAERS Safety Report 5309795-6 (Version None)
Quarter: 2007Q2

REPORT INFORMATION
  Report Type: 
  Country: None (occurrence: None)
  Receive Date: 20070427
  Receipt Date: 20060413
  Transmission Date: 20071010
  Serious: No
  Sender: FDA-Public Use
  Company Number: US-GLAXOSMITHKLINE-A0601670A

PATIENT
  Age: 41 Year
  Sex: Female

DRUGS (10)
  1. ZOFRAN [Suspect]
     Dosage: 1TAB AS REQUIRED
     Route: 048
     Dates: start: 20060405, end: 20060412
  2. LOTREL [Concomitant]
  3. METOPROLOL SUCCINATE [Concomitant]
  4. ESTRACE [Concomitant]
  5. PRILOSEC [Concomitant]
  6. AMITRIPTYLINE HCL [Concomitant]
  7. PHRENILIN [Concomitant]
  8. REGLAN [Concomitant]
  9. ZANAFLEX [Concomitant]
  10. TIGAN [Concomitant]

REACTIONS (2)
  - PHARMACEUTICAL PRODUCT COMPLAINT [None]
  - VOMITING [None]
